FAERS Safety Report 5160116-1 (Version None)
Quarter: 2006Q4

REPORT INFORMATION
  Report Type: 
  Country: None (occurrence: None)
  Receive Date: 20061115
  Receipt Date: 20061101
  Transmission Date: 20070319
  Serious: Yes (Hospitalization)
  Sender: FDA-Public Use
  Company Number: CHPA2006US09861

PATIENT
  Age: 71 Year
  Sex: Male
  Weight: 65.8 kg

DRUGS (3)
  1. TRANSDERM SCOP [Suspect]
     Indication: PROPHYLAXIS
     Dosage: 1.5 MG, TRANSDERMAL
     Route: 062
     Dates: start: 20060813
  2. ASPIRIN [Concomitant]
  3. TOPROL-XL [Concomitant]

REACTIONS (6)
  - ABNORMAL BEHAVIOUR [None]
  - AGITATION [None]
  - CONFUSIONAL STATE [None]
  - DISORIENTATION [None]
  - PHARMACEUTICAL PRODUCT COMPLAINT [None]
  - RESTLESSNESS [None]
